FAERS Safety Report 18920368 (Version 1)
Quarter: 2021Q1

REPORT INFORMATION
  Report Type: Report from Study
  Country: US (occurrence: US)
  Receive Date: 20210222
  Receipt Date: 20210222
  Transmission Date: 20210420
  Serious: Yes (Hospitalization, Other)
  Sender: FDA-Public Use
  Company Number: US-ACADIA PHARMACEUTICALS INC.-ACA-2021-PIM-000381

PATIENT
  Age: 63 Year
  Sex: Male

DRUGS (14)
  1. CARAFATE [Concomitant]
     Active Substance: SUCRALFATE
     Dosage: 100 MG/ML
  2. DONEPEZIL. [Concomitant]
     Active Substance: DONEPEZIL
  3. LORAZEPAM. [Concomitant]
     Active Substance: LORAZEPAM
     Dosage: 1 MILLIGRAM PRN
  4. GABAPENTINE [Concomitant]
     Active Substance: GABAPENTIN
  5. LIDOCAINE. [Concomitant]
     Active Substance: LIDOCAINE
  6. TRAZODONE [Concomitant]
     Active Substance: TRAZODONE HYDROCHLORIDE
  7. AMLODIPINE [Concomitant]
     Active Substance: AMLODIPINE BESYLATE
  8. MEMANTINE. [Concomitant]
     Active Substance: MEMANTINE
     Dosage: 10 MILLIGRAM, BID
  9. ATORVASTATIN [Concomitant]
     Active Substance: ATORVASTATIN
  10. NUPLAZID [Suspect]
     Active Substance: PIMAVANSERIN TARTRATE
     Indication: PARKINSON^S DISEASE
     Dosage: 34 MILLIGRAM, QD
     Route: 048
     Dates: start: 202010
  11. CAPSAICIN. [Concomitant]
     Active Substance: CAPSAICIN
  12. DIVALPROEX [Concomitant]
     Active Substance: DIVALPROEX SODIUM
     Dosage: 250 MILLIGRAM, BID
  13. TAMSULOSIN [Concomitant]
     Active Substance: TAMSULOSIN
  14. ZOLPIDEM [Concomitant]
     Active Substance: ZOLPIDEM TARTRATE

REACTIONS (3)
  - Syncope [Recovered/Resolved]
  - Delirium [Recovered/Resolved]
  - Dementia [Recovered/Resolved]

NARRATIVE: CASE EVENT DATE: 20201229
